FAERS Safety Report 9254633 (Version 1)
Quarter: 2013Q1

REPORT INFORMATION
  Report Type: Spontaneous
  Country: US (occurrence: None)
  Receive Date: 20121203
  Receipt Date: 20121203
  Transmission Date: 20140127
  Serious: Yes (Hospitalization, Other)
  Sender: FDA-Public Use
  Company Number: 2011SP051275

PATIENT
  Age: 34 Year
  Sex: Female

DRUGS (5)
  1. NUVARING [Suspect]
     Indication: ACNE CYSTIC
     Dates: start: 200808, end: 20081121
  2. FLONASE (FLUTICASONE PROPIONATE) [Concomitant]
  3. VITAMINS (UNSPECIFIED) [Concomitant]
  4. ASCORBIC ACID (ASCORBIC ACID) [Concomitant]
  5. COMPOSITION UNSPECIFIED (COMPOSITION UNSPECIFIED) [Concomitant]

REACTIONS (5)
  - Pulmonary embolism [None]
  - Pelvic venous thrombosis [None]
  - Off label use [None]
  - Back pain [None]
  - Muscle spasms [None]
